FAERS Safety Report 10034335 (Version 2)
Quarter: 2014Q2

REPORT INFORMATION
  Report Type: Spontaneous
  Country: US (occurrence: US)
  Receive Date: 20140325
  Receipt Date: 20140515
  Transmission Date: 20141212
  Serious: No
  Sender: FDA-Public Use
  Company Number: US-009507513-1403USA004448

PATIENT
  Sex: Female
  Weight: 83.45 kg

DRUGS (2)
  1. OXYTROL FOR WOMEN [Suspect]
     Indication: BLADDER DISORDER
     Dosage: UNK, UNKNOWN
     Route: 062
     Dates: start: 201401, end: 20140220
  2. OXYTROL FOR WOMEN [Suspect]
     Dosage: UNK, UNKNOWN
     Route: 062
     Dates: start: 2014, end: 201404

REACTIONS (5)
  - Dizziness [Unknown]
  - Fall [Unknown]
  - Contusion [Unknown]
  - Drug effect decreased [Unknown]
  - Product adhesion issue [Unknown]
